FAERS Safety Report 4316304-7 (Version None)
Quarter: 2004Q1

REPORT INFORMATION
  Report Type: 
  Country: None (occurrence: None)
  Receive Date: 20040311
  Receipt Date: 20040226
  Transmission Date: 20041129
  Serious: Yes (Hospitalization, Other)
  Sender: FDA-Public Use
  Company Number: HQWYE242423FEB04

PATIENT
  Age: 74 Year
  Sex: Male

DRUGS (7)
  1. ETODOLAC [Suspect]
     Indication: ARTHROPATHY
     Dosage: SEE IMAGE
     Dates: start: 20030924, end: 20030929
  2. ETODOLAC [Suspect]
     Indication: ARTHROPATHY
     Dosage: SEE IMAGE
     Dates: start: 20031217, end: 20040204
  3. SELBEX (TEPRENONE) [Concomitant]
  4. SELBEX (TEPRENONE) [Concomitant]
  5. MOHRUS (KETOPROFEN) [Concomitant]
  6. MILTAX (KETOPROFEN) [Concomitant]
  7. KASHILON (CHONDROITIN SULFATE SODIUM, SALICYLATE SODIUM) [Concomitant]

REACTIONS (5)
  - ARTHROPATHY [None]
  - FALL [None]
  - HEPATITIS [None]
  - NASOPHARYNGITIS [None]
  - PYREXIA [None]
